FAERS Safety Report 13360453 (Version 2)
Quarter: 2017Q2

REPORT INFORMATION
  Report Type: Spontaneous
  Country: US (occurrence: US)
  Receive Date: 20170322
  Receipt Date: 20170427
  Transmission Date: 20170830
  Serious: Yes (Death, Hospitalization)
  Sender: FDA-Public Use
  Company Number: US-KERYX BIOPHARMACEUTICALS, INC.-2017US002652

PATIENT
  Age: 60 Year
  Sex: Female

DRUGS (1)
  1. AURYXIA [Suspect]
     Active Substance: TETRAFERRIC TRICITRATE DECAHYDRATE
     Indication: HYPERPHOSPHATAEMIA
     Dosage: 4 G (4 TABLETS), DAILY
     Route: 048
     Dates: start: 201702, end: 20170307

REACTIONS (2)
  - Implant site infection [Fatal]
  - Sepsis [Fatal]

NARRATIVE: CASE EVENT DATE: 20170308
